FAERS Safety Report 6189243-7 (Version None)
Quarter: 2009Q2

REPORT INFORMATION
  Report Type: 
  Country: None (occurrence: None)
  Receive Date: 20090513
  Receipt Date: 20090506
  Transmission Date: 20091009
  Serious: Yes (Other)
  Sender: FDA-Public Use
  Company Number: PHEH2007US15445

PATIENT
  Sex: Female

DRUGS (21)
  1. AREDIA [Suspect]
  2. ZOMETA [Suspect]
  3. REVLIMID [Concomitant]
     Dosage: UNK
     Dates: end: 20070701
  4. ANTINEOPLASTIC AGENTS [Concomitant]
  5. RADIATION THERAPY [Concomitant]
  6. POTASSIUM CHLORIDE [Concomitant]
  7. PRAVACHOL [Concomitant]
  8. OXYCONTIN [Concomitant]
  9. ZOLOFT [Concomitant]
  10. TEMAZEPAM [Concomitant]
  11. REQUIP [Concomitant]
  12. OMEPRAZOLE [Concomitant]
  13. PROTONIX [Concomitant]
  14. LISINOPRIL [Concomitant]
  15. VALTREX [Concomitant]
  16. XANAX [Concomitant]
  17. PERCOCET [Concomitant]
  18. HYDROCHLOROTHIAZIDE [Concomitant]
  19. DEXAMETHASONE 4MG TAB [Concomitant]
  20. ARANESP [Concomitant]
  21. ENDOCET [Concomitant]

REACTIONS (22)
  - ANAEMIA [None]
  - ANXIETY [None]
  - ARTHRALGIA [None]
  - BACK PAIN [None]
  - BIOPSY BONE MARROW ABNORMAL [None]
  - BONE DISORDER [None]
  - BONE MARROW TRANSPLANT [None]
  - DYSPHONIA [None]
  - FACIAL PAIN [None]
  - FALL [None]
  - GROIN PAIN [None]
  - INJURY [None]
  - LEUKOPENIA [None]
  - LUMBAR VERTEBRAL FRACTURE [None]
  - MULTIPLE MYELOMA [None]
  - MYALGIA [None]
  - OSTEOMYELITIS [None]
  - OSTEONECROSIS [None]
  - PAIN [None]
  - PAIN IN EXTREMITY [None]
  - THROMBOCYTOPENIA [None]
  - WEIGHT INCREASED [None]
